FAERS Safety Report 9732932 (Version 1)
Quarter: 2013Q4

REPORT INFORMATION
  Report Type: Spontaneous
  Country: US (occurrence: US)
  Receive Date: 20131204
  Receipt Date: 20131204
  Transmission Date: 20140711
  Serious: No
  Sender: FDA-Public Use
  Company Number: US-ENDO PHARMACEUTICALS INC.-ZOLP20120070

PATIENT
  Age: 60 Year
  Sex: Female

DRUGS (2)
  1. ZOLPIDEM TARTRATE TABLETS 10MG [Suspect]
     Indication: INSOMNIA
     Route: 048
     Dates: start: 20120829
  2. ZOLPIDEM TARTRATE TABLETS 10MG [Suspect]
     Route: 048
     Dates: start: 201208, end: 20120828

REACTIONS (2)
  - Intentional drug misuse [Unknown]
  - Drug ineffective [Not Recovered/Not Resolved]
